FAERS Safety Report 4308711-3 (Version None)
Quarter: 2004Q1

REPORT INFORMATION
  Report Type: 
  Country: None (occurrence: None)
  Receive Date: 20040301
  Receipt Date: 20040301
  Transmission Date: 20041129
  Serious: Yes (Hospitalization)
  Sender: FDA-Public Use
  Company Number: None

PATIENT
  Age: 59 Year
  Sex: Female

DRUGS (3)
  1. DILTIAZEM [Suspect]
  2. FELODIPINE [Suspect]
  3. BENAZEPRIL HCL [Concomitant]

REACTIONS (18)
  - ACCIDENTAL OVERDOSE [None]
  - ASTHENIA [None]
  - BLOOD CREATINE INCREASED [None]
  - BLOOD POTASSIUM INCREASED [None]
  - BLOOD PRESSURE DECREASED [None]
  - BLOOD PRESSURE SYSTOLIC INCREASED [None]
  - BLOOD UREA INCREASED [None]
  - BRADYCARDIA [None]
  - CHEST PAIN [None]
  - DEPRESSED LEVEL OF CONSCIOUSNESS [None]
  - DIZZINESS [None]
  - DYSPNOEA EXERTIONAL [None]
  - HEART RATE DECREASED [None]
  - HYPERGLYCAEMIA [None]
  - NAUSEA [None]
  - NODAL ARRHYTHMIA [None]
  - PALLOR [None]
  - VOMITING [None]
